FAERS Safety Report 4567273-6 (Version None)
Quarter: 2005Q1

REPORT INFORMATION
  Report Type: 
  Country: None (occurrence: None)
  Receive Date: 20050201
  Receipt Date: 20050120
  Transmission Date: 20050727
  Serious: Yes (Other)
  Sender: FDA-Public Use
  Company Number: BE-SANOFISYNTHELABO-A01200500379

PATIENT
  Age: 65 Year
  Sex: Male

DRUGS (3)
  1. LEUCOVORIN CALCIUM [Concomitant]
     Indication: RECTOSIGMOID CANCER
     Dosage: UNK
     Route: 065
     Dates: start: 20041201, end: 20041201
  2. FLUOROURACIL [Concomitant]
     Indication: RECTOSIGMOID CANCER
     Dosage: UNK
     Route: 065
     Dates: start: 20041201, end: 20041201
  3. ELOXATIN [Suspect]
     Indication: COLON CANCER METASTATIC
     Dosage: UNK
     Route: 042
     Dates: start: 20041201, end: 20041201

REACTIONS (6)
  - ALANINE AMINOTRANSFERASE INCREASED [None]
  - ASPARTATE AMINOTRANSFERASE INCREASED [None]
  - BLOOD ALKALINE PHOSPHATASE INCREASED [None]
  - BLOOD BILIRUBIN INCREASED [None]
  - BLOOD LACTATE DEHYDROGENASE INCREASED [None]
  - GAMMA-GLUTAMYLTRANSFERASE INCREASED [None]
